FAERS Safety Report 4932308-5 (Version None)
Quarter: 2006Q1

REPORT INFORMATION
  Report Type: 
  Country: None (occurrence: None)
  Receive Date: 20060228
  Receipt Date: 20060216
  Transmission Date: 20060701
  Serious: Yes (Hospitalization)
  Sender: FDA-Public Use
  Company Number: 28611

PATIENT
  Age: 34 Year
  Sex: Male

DRUGS (3)
  1. FLECAINIDE ACETATE [Suspect]
     Indication: ATRIAL FIBRILLATION
     Dosage: 100 MG ORAL
     Route: 048
     Dates: start: 20050816, end: 20050915
  2. PREVISCAN (FLUINDIONE) [Suspect]
     Indication: ATRIAL FIBRILLATION
     Dosage: 20 MG ORAL; 10 OR 15 MG, ORAL
     Route: 048
     Dates: start: 20050811, end: 20050828
  3. OFLOXACIN [Suspect]
     Dosage: 400 MG ORAL
     Route: 048
     Dates: start: 20050810, end: 20050917

REACTIONS (3)
  - BACK PAIN [None]
  - HAEMATURIA [None]
  - INTERNATIONAL NORMALISED RATIO INCREASED [None]
